FAERS Safety Report 24067879 (Version 1)
Quarter: 2024Q3

REPORT INFORMATION
  Report Type: Spontaneous
  Country: FR (occurrence: FR)
  Receive Date: 20240710
  Receipt Date: 20240710
  Transmission Date: 20241016
  Serious: Yes (Hospitalization)
  Sender: AMGEN
  Company Number: None

PATIENT
  Age: 2 Year
  Sex: Female
  Weight: 12.8 kg

DRUGS (5)
  1. IVABRADINE [Interacting]
     Active Substance: IVABRADINE
     Indication: Heart disease congenital
     Dosage: 5 MG QD
     Route: 065
     Dates: end: 20240611
  2. NALBUPHINE HYDROCHLORIDE [Suspect]
     Active Substance: NALBUPHINE HYDROCHLORIDE
     Indication: Postoperative analgesia
     Dosage: UNK
     Route: 040
     Dates: start: 20240611, end: 20240611
  3. MIDAZOLAM [Interacting]
     Active Substance: MIDAZOLAM
     Indication: Sedation
     Dosage: UNK
     Route: 040
     Dates: start: 20240610, end: 20240611
  4. SPIRONOLACTONE [Concomitant]
     Active Substance: SPIRONOLACTONE
     Indication: Product used for unknown indication
     Dosage: UNK
     Route: 065
  5. ENTRESTO [Concomitant]
     Active Substance: SACUBITRIL\VALSARTAN
     Indication: Product used for unknown indication
     Dosage: UNK
     Route: 065

REACTIONS (3)
  - Bradycardia [Recovered/Resolved]
  - Drug interaction [Recovered/Resolved]
  - Product use issue [Recovered/Resolved]

NARRATIVE: CASE EVENT DATE: 20240611
